FAERS Safety Report 5024672-6 (Version None)
Quarter: 2006Q2

REPORT INFORMATION
  Report Type: 
  Country: None (occurrence: None)
  Receive Date: 20060421
  Receipt Date: 20060324
  Transmission Date: 20061013
  Serious: Yes (Other)
  Sender: FDA-Public Use
  Company Number: HQWYE557228MAR06

PATIENT
  Age: 27 Year
  Sex: Male
  Weight: 106.69 kg

DRUGS (6)
  1. ZOSYN [Suspect]
     Indication: OSTEOMYELITIS
     Dosage: 4.5 G 1X PER 6 HR, INTRAVENOUS
     Route: 042
     Dates: start: 20060125, end: 20060214
  2. ZOSYN [Suspect]
  3. ZOSYN [Suspect]
  4. ROXICET [Concomitant]
  5. CIPRO [Concomitant]
  6. COLACE (DOCUSATE SODIUM) [Concomitant]

REACTIONS (2)
  - ALANINE AMINOTRANSFERASE INCREASED [None]
  - ASPARTATE AMINOTRANSFERASE INCREASED [None]
